FAERS Safety Report 8234954-2 (Version None)
Quarter: 2012Q1

REPORT INFORMATION
  Report Type: 
  Country: None (occurrence: None)
  Receive Date: 20120323
  Receipt Date: 20120306
  Transmission Date: 20120608
  Serious: Yes (Hospitalization, Other)
  Sender: FDA-Public Use
  Company Number: 2010SP053045

PATIENT
  Age: 32 Year
  Sex: Female
  Weight: 72.5755 kg

DRUGS (3)
  1. NUVARING [Suspect]
     Indication: CONTRACEPTION
     Dates: start: 20021001
  2. DARVOCET [Suspect]
  3. CODEINE SULFATE [Suspect]

REACTIONS (35)
  - GASTROINTESTINAL DISORDER [None]
  - MUSCULOSKELETAL CHEST PAIN [None]
  - LOSS OF CONSCIOUSNESS [None]
  - VAGINAL HAEMORRHAGE [None]
  - PULMONARY FIBROSIS [None]
  - PREGNANCY [None]
  - DEEP VEIN THROMBOSIS [None]
  - CONTUSION [None]
  - EXCORIATION [None]
  - HYPERCOAGULATION [None]
  - VARICOSE VEIN [None]
  - ASTHMA [None]
  - ABORTION MISSED [None]
  - ANAL FISTULA [None]
  - MATERNAL EXPOSURE TIMING UNSPECIFIED [None]
  - LYMPHADENOPATHY [None]
  - THROMBOSIS [None]
  - LOBAR PNEUMONIA [None]
  - ATELECTASIS [None]
  - PULMONARY INFARCTION [None]
  - MIGRAINE [None]
  - URTICARIA [None]
  - DIARRHOEA [None]
  - POLYP [None]
  - ANXIETY [None]
  - NASOPHARYNGITIS [None]
  - BRONCHITIS [None]
  - BACK PAIN [None]
  - LIGAMENT SPRAIN [None]
  - PLEURAL EFFUSION [None]
  - PULMONARY EMBOLISM [None]
  - VOMITING [None]
  - HEPATIC STEATOSIS [None]
  - FALL [None]
  - SYNCOPE [None]
